FAERS Safety Report 18232703 (Version 1)
Quarter: 2020Q3

REPORT INFORMATION
  Report Type: Spontaneous
  Country: US (occurrence: US)
  Receive Date: 20200904
  Receipt Date: 20200904
  Transmission Date: 20201103
  Serious: Yes (Hospitalization)
  Sender: FDA-Public Use
  Company Number: None

PATIENT
  Age: 68 Year
  Sex: Male

DRUGS (2)
  1. CHLORTHALIDONE (CHLORTHALIDONE 25MG TAB) [Suspect]
     Active Substance: CHLORTHALIDONE
     Indication: HYPERTENSION
     Dates: start: 20200718, end: 20200722
  2. LISINOPRIL (LISINOPRIL 20MG TAB) [Suspect]
     Active Substance: LISINOPRIL
     Dates: start: 20131115, end: 20200722

REACTIONS (2)
  - Hypotension [None]
  - Ankle fracture [None]

NARRATIVE: CASE EVENT DATE: 20200722
